FAERS Safety Report 17428145 (Version 1)
Quarter: 2020Q1

REPORT INFORMATION
  Report Type: Spontaneous
  Country: US (occurrence: US)
  Receive Date: 20200217
  Receipt Date: 20200217
  Transmission Date: 20200409
  Serious: Yes (Death, Life-Threatening, Other)
  Sender: FDA-Public Use
  Company Number: US-AMGEN-USASP2020025044

PATIENT

DRUGS (2)
  1. FILGRASTIM [Suspect]
     Active Substance: FILGRASTIM
     Indication: PRODUCT USED FOR UNKNOWN INDICATION
     Dosage: 300 MICROGRAM (ON DAYS 3 TO 18 OF EACH CYCLE)
     Route: 058
  2. PACLITAXEL. [Suspect]
     Active Substance: PACLITAXEL
     Indication: MESOTHELIOMA MALIGNANT
     Dosage: 250 MILLIGRAM/SQ. METER, Q3WK (VIA CENTRAL LINE AS 24 HOUR INFUSION)
     Route: 042

REACTIONS (11)
  - Pneumonia [Fatal]
  - Infection [Fatal]
  - Malaise [Unknown]
  - Neurotoxicity [Unknown]
  - Neuropathy peripheral [Unknown]
  - Therapeutic product effect incomplete [Unknown]
  - Performance status decreased [Unknown]
  - Fatigue [Unknown]
  - Anaemia [Unknown]
  - Granulocytopenia [Unknown]
  - Mesothelioma malignant recurrent [Unknown]
